FAERS Safety Report 11328029 (Version 1)
Quarter: 2015Q3

REPORT INFORMATION
  Report Type: Spontaneous
  Country: AU (occurrence: AU)
  Receive Date: 20150731
  Receipt Date: 20150731
  Transmission Date: 20151125
  Serious: Yes (Other)
  Sender: FDA-Public Use
  Company Number: AU-BAXTER-2015BAX041584

PATIENT
  Age: 65 Year
  Sex: Male

DRUGS (3)
  1. TISSEEL VH [Suspect]
     Active Substance: FIBRINOGEN HUMAN\THROMBIN HUMAN
     Indication: TRANSPLANT
     Route: 061
  2. CHLORSIG [Suspect]
     Active Substance: CHLORAMPHENICOL
     Indication: POSTOPERATIVE CARE
     Route: 065
  3. PREDNEFRIN FORTE [Suspect]
     Active Substance: PHENYLEPHRINE HYDROCHLORIDE\PREDNISOLONE ACETATE
     Indication: POSTOPERATIVE CARE
     Route: 065

REACTIONS (5)
  - Post procedural inflammation [Unknown]
  - Mass [Unknown]
  - Conjunctival disorder [Unknown]
  - Graft complication [Unknown]
  - Dysplasia [Unknown]
